FAERS Safety Report 15121668 (Version 1)
Quarter: 2018Q3

REPORT INFORMATION
  Report Type: Spontaneous
  Country: US (occurrence: US)
  Receive Date: 20180709
  Receipt Date: 20180709
  Transmission Date: 20181010
  Serious: No
  Sender: FDA-Public Use
  Company Number: US-MYLANLABS-2018M1045511

PATIENT
  Sex: Female
  Weight: 59 kg

DRUGS (4)
  1. TIZANIDINE. [Suspect]
     Active Substance: TIZANIDINE
     Indication: TRIGEMINAL NEURALGIA
  2. SERTRALINE [Suspect]
     Active Substance: SERTRALINE HYDROCHLORIDE
     Indication: PRODUCT USED FOR UNKNOWN INDICATION
     Dosage: UNK
     Route: 048
  3. CLONAZEPAM. [Suspect]
     Active Substance: CLONAZEPAM
     Indication: MUSCLE RELAXANT THERAPY
     Dosage: UNK
     Route: 048
  4. TIZANIDINE. [Suspect]
     Active Substance: TIZANIDINE
     Indication: MENTAL IMPAIRMENT
     Dosage: UNK

REACTIONS (6)
  - Coordination abnormal [Unknown]
  - Lethargy [Unknown]
  - Somnolence [Unknown]
  - Oedema peripheral [Unknown]
  - Dizziness [Unknown]
  - Unevaluable event [Unknown]
